FAERS Safety Report 14884111 (Version 1)
Quarter: 2018Q2

REPORT INFORMATION
  Report Type: Report from Study
  Country: JP (occurrence: JP)
  Receive Date: 20180511
  Receipt Date: 20180511
  Transmission Date: 20180711
  Serious: Yes (Other)
  Sender: FDA-Public Use
  Company Number: JP-SHIRE-JP201817382

PATIENT

DRUGS (3)
  1. PENTASA [Concomitant]
     Active Substance: MESALAMINE
     Indication: COLITIS ULCERATIVE
  2. LIALDA [Suspect]
     Active Substance: MESALAMINE
     Indication: COLITIS ULCERATIVE
     Dosage: 1200 MG, 4X/DAY:QID
     Route: 048
     Dates: start: 20171206, end: 20180101
  3. STERONEMA [Concomitant]
     Active Substance: BETAMETHASONE SODIUM PHOSPHATE
     Indication: COLITIS ULCERATIVE

REACTIONS (2)
  - Haematochezia [Recovered/Resolved]
  - Diarrhoea [Recovered/Resolved]

NARRATIVE: CASE EVENT DATE: 20171207
